FAERS Safety Report 4672624-8 (Version None)
Quarter: 2005Q2

REPORT INFORMATION
  Report Type: 
  Country: None (occurrence: None)
  Receive Date: 20050524
  Receipt Date: 20050520
  Transmission Date: 20051028
  Serious: Yes (Life-Threatening, Hospitalization)
  Sender: FDA-Public Use
  Company Number: US-BRISTOL-MYERS SQUIBB COMPANY-12977641

PATIENT
  Age: 55 Year
  Sex: Male

DRUGS (6)
  1. CETUXIMAB [Suspect]
     Indication: NON-SMALL CELL LUNG CANCER
     Dosage: THERAPY INTERRUPTED (DATE NOT REPORTED).
     Route: 042
     Dates: start: 20050422
  2. CARBOPLATIN [Suspect]
     Indication: NON-SMALL CELL LUNG CANCER
     Dosage: THERAPY INTERRUPTED (DATE NOT REPORTED).
     Route: 042
     Dates: start: 20050429
  3. TAXOL [Suspect]
     Indication: NON-SMALL CELL LUNG CANCER
     Dosage: THERAPY INTERRUPTED (DATE NOT REPORTED).
     Route: 042
     Dates: start: 20050429
  4. COUMADIN [Concomitant]
     Dates: start: 20050422
  5. INDOCIN [Concomitant]
     Dates: start: 20050416
  6. VICODIN [Concomitant]
     Dates: start: 20050416

REACTIONS (1)
  - PSYCHOTIC DISORDER [None]
